FAERS Safety Report 13913217 (Version 1)
Quarter: 2017Q3

REPORT INFORMATION
  Report Type: Spontaneous
  Country: US (occurrence: US)
  Receive Date: 20170828
  Receipt Date: 20170828
  Transmission Date: 20171127
  Serious: No
  Sender: FDA-Public Use
  Company Number: US-ROCHE-1127382

PATIENT
  Age: 4 Year
  Sex: Male
  Weight: 16 kg

DRUGS (2)
  1. NUTROPIN [Suspect]
     Active Substance: SOMATROPIN
     Indication: EMPTY SELLA SYNDROME
     Route: 058
  2. NUTROPIN [Suspect]
     Active Substance: SOMATROPIN
     Indication: HYPOPITUITARISM

REACTIONS (1)
  - Rubber sensitivity [Unknown]

NARRATIVE: CASE EVENT DATE: 19980529
